FAERS Safety Report 9463587 (Version 1)
Quarter: 2013Q3

REPORT INFORMATION
  Report Type: Spontaneous
  Country: BR (occurrence: BR)
  Receive Date: 20130819
  Receipt Date: 20130819
  Transmission Date: 20140515
  Serious: Yes (Hospitalization, Other)
  Sender: FDA-Public Use
  Company Number: BR-ACCORD-018993

PATIENT
  Age: 77 Year
  Sex: Female

DRUGS (7)
  1. PACLITAXEL [Suspect]
     Indication: PRODUCT USED FOR UNKNOWN INDICATION
     Route: 042
     Dates: start: 20130505, end: 20130711
  2. HERCEPTIN [Concomitant]
     Route: 042
  3. DEXAMETHASONE [Concomitant]
     Route: 042
     Dates: start: 20130711, end: 20130711
  4. RANITIDINE [Concomitant]
     Dosage: DOSE: 50MG/2ML
     Route: 042
     Dates: start: 20130711, end: 20130711
  5. ONDANSETRON [Concomitant]
     Dosage: DOSE:8MG/4ML
     Route: 042
     Dates: start: 20130711, end: 20130711
  6. METFORMIN [Concomitant]
     Indication: DIABETES MELLITUS
  7. PARACETAMOL [Concomitant]

REACTIONS (2)
  - Hypertensive crisis [Recovered/Resolved]
  - Chest pain [Recovered/Resolved]
